FAERS Safety Report 12932680 (Version 2)
Quarter: 2016Q4

REPORT INFORMATION
  Report Type: Spontaneous
  Country: CH (occurrence: CH)
  Receive Date: 20161111
  Receipt Date: 20161124
  Transmission Date: 20170207
  Serious: Yes (Hospitalization)
  Sender: FDA-Public Use
  Company Number: CH-AMGEN-CHESP2016155779

PATIENT
  Age: 68 Year
  Sex: Female

DRUGS (6)
  1. MIRTAZAPINE. [Concomitant]
     Active Substance: MIRTAZAPINE
     Dosage: 30 MG, QD
  2. PRIMPERAN [Concomitant]
     Active Substance: METOCLOPRAMIDE HYDROCHLORIDE
     Dosage: UNK UNK, QD
  3. VITAMIN D [Concomitant]
     Active Substance: CHOLECALCIFEROL
     Indication: VITAMIN D DEFICIENCY
     Dosage: 45000 UNIT (10 ML), UNK
  4. PROLIA [Suspect]
     Active Substance: DENOSUMAB
     Indication: OSTEOPOROSIS
     Dosage: 60 MG/ML, Q6MO (TWICE PER YEAR)
     Route: 058
     Dates: start: 20130315
  5. CANDESARTAN [Concomitant]
     Active Substance: CANDESARTAN
     Indication: BLOOD PRESSURE MEASUREMENT
     Dosage: 16 TO 32 MG, QD
  6. TEMESTA [Concomitant]
     Active Substance: LORAZEPAM
     Indication: PROPHYLAXIS
     Dosage: 20 MG, 2 TIMES QD

REACTIONS (18)
  - Quality of life decreased [Not Recovered/Not Resolved]
  - Hypertension [Unknown]
  - Ultrasound kidney abnormal [Unknown]
  - Vomiting [Not Recovered/Not Resolved]
  - Adjustment disorder with depressed mood [Unknown]
  - Decreased appetite [Unknown]
  - Large intestinal polypectomy [Unknown]
  - Hiatus hernia [Unknown]
  - Nausea [Not Recovered/Not Resolved]
  - Vertigo [Not Recovered/Not Resolved]
  - Weight decreased [Unknown]
  - White matter lesion [Not Recovered/Not Resolved]
  - Fatigue [Not Recovered/Not Resolved]
  - Faeces discoloured [Recovered/Resolved]
  - Dizziness [Not Recovered/Not Resolved]
  - Lacrimal disorder [Unknown]
  - Gastritis [Unknown]
  - Diverticulum [Unknown]

NARRATIVE: CASE EVENT DATE: 2013
